FAERS Safety Report 24986205 (Version 2)
Quarter: 2025Q1

REPORT INFORMATION
  Report Type: Spontaneous
  Country: BR (occurrence: BR)
  Receive Date: 20250219
  Receipt Date: 20250220
  Transmission Date: 20250409
  Serious: No
  Sender: PFIZER
  Company Number: BR-PFIZER INC-PV202500018544

PATIENT

DRUGS (1)
  1. SOMATROGON [Suspect]
     Active Substance: SOMATROGON
     Dosage: UNK, WEEKLY

REACTIONS (1)
  - Partial lipodystrophy [Unknown]
